FAERS Safety Report 9125541 (Version 1)
Quarter: 2013Q1

REPORT INFORMATION
  Report Type: Report from Study
  Country: GB (occurrence: GB)
  Receive Date: 20130227
  Receipt Date: 20130227
  Transmission Date: 20140127
  Serious: Yes (Congenital Anomaly)
  Sender: FDA-Public Use
  Company Number: GB-B.I. PHARMACEUTICALS,INC./RIDGEFIELD-2013-BI-03517BP

PATIENT
  Sex: Female
  Weight: 4.48 kg

DRUGS (2)
  1. VIRAMUNE [Suspect]
     Route: 064
  2. TRUVADA [Concomitant]
     Route: 064

REACTIONS (1)
  - Congenital anomaly [Unknown]
